FAERS Safety Report 18047674 (Version 1)
Quarter: 2020Q3

REPORT INFORMATION
  Report Type: Spontaneous
  Country: US (occurrence: US)
  Receive Date: 20200720
  Receipt Date: 20200720
  Transmission Date: 20201103
  Serious: Yes (Death)
  Sender: FDA-Public Use
  Company Number: None

PATIENT
  Age: 72 Year
  Sex: Male

DRUGS (1)
  1. AMBRISENTAN TAB 10MG [Suspect]
     Active Substance: AMBRISENTAN
     Indication: PULMONARY HYPERTENSION
     Route: 048
     Dates: start: 201804, end: 20200720

REACTIONS (3)
  - Pulmonary hypertension [None]
  - Hospice care [None]
  - Disease progression [None]

NARRATIVE: CASE EVENT DATE: 20200720
